FAERS Safety Report 13948855 (Version 5)
Quarter: 2018Q2

REPORT INFORMATION
  Report Type: Spontaneous
  Country: CA (occurrence: CA)
  Receive Date: 20170908
  Receipt Date: 20180422
  Transmission Date: 20180711
  Serious: Yes (Hospitalization, Other)
  Sender: FDA-Public Use
  Company Number: CA-APOTEX-2017AP017670

PATIENT
  Age: 30 Year
  Sex: Female

DRUGS (7)
  1. APO-CAL 250 AND CALCIUM 250 MG [Suspect]
     Active Substance: CALCIUM CARBONATE
     Indication: HYPERCALCAEMIA
     Dosage: AS NEEDED
     Route: 065
  2. APO-CALCITONIN INJECTABLE [Suspect]
     Active Substance: CALCITONIN
     Indication: HYPERCALCAEMIA
     Dosage: 4 IU/KG, BID
     Route: 065
  3. SALINE                             /00075401/ [Suspect]
     Active Substance: SODIUM CHLORIDE
     Indication: HYPERCALCAEMIA
     Dosage: UNK
     Route: 065
  4. SODIUM CHLORIDE. [Suspect]
     Active Substance: SODIUM CHLORIDE
     Indication: PRODUCT USED FOR UNKNOWN INDICATION
     Dosage: UNK
     Route: 042
  5. CHOLECALCIFEROL [Suspect]
     Active Substance: CHOLECALCIFEROL
     Indication: PRODUCT USED FOR UNKNOWN INDICATION
     Dosage: 1000 IU, QD
     Route: 065
  6. VITAMIN D                          /00107901/ [Suspect]
     Active Substance: ERGOCALCIFEROL
     Indication: PRODUCT USED FOR UNKNOWN INDICATION
     Dosage: 1000 IU, UNK
     Route: 065
  7. ERGOCALCIFEROL. [Suspect]
     Active Substance: ERGOCALCIFEROL
     Indication: HYPERCALCAEMIA
     Dosage: 1000 IU, UNK
     Route: 065

REACTIONS (11)
  - Renal failure [Recovered/Resolved]
  - Maternal exposure during pregnancy [Unknown]
  - Blood creatinine increased [Recovered/Resolved]
  - Calculus urinary [Recovered/Resolved]
  - Exposure during pregnancy [Recovered/Resolved]
  - Blood calcium increased [Unknown]
  - Hypercalcaemia [Recovered/Resolved]
  - Normal newborn [Unknown]
  - Nephrocalcinosis [Recovered/Resolved]
  - Drug ineffective [Recovered/Resolved]
  - Diabetes insipidus [Unknown]
